FAERS Safety Report 4758644-3 (Version None)
Quarter: 2005Q3

REPORT INFORMATION
  Report Type: 
  Country: None (occurrence: None)
  Receive Date: 20050826
  Receipt Date: 20050816
  Transmission Date: 20060218
  Serious: Yes (Hospitalization)
  Sender: FDA-Public Use
  Company Number: 2005115981

PATIENT
  Sex: Male

DRUGS (1)
  1. GENOTROPIN [Suspect]
     Indication: ILL-DEFINED DISORDER
     Dosage: 0.2 MG (0.2 MG, 1 IN 1 D), SUBCUTANEOUS
     Route: 058
     Dates: start: 20050810

REACTIONS (1)
  - GASTROENTERITIS [None]
